FAERS Safety Report 11727028 (Version 2)
Quarter: 2015Q4

REPORT INFORMATION
  Report Type: Report from Study
  Country: US (occurrence: US)
  Receive Date: 20151112
  Receipt Date: 20151203
  Transmission Date: 20160304
  Serious: Yes (Hospitalization, Other)
  Sender: FDA-Public Use
  Company Number: US-BIOGENIDEC-2015BI149339

PATIENT
  Age: 39 Year
  Sex: Male

DRUGS (3)
  1. AVONEX [Suspect]
     Active Substance: INTERFERON BETA-1A
     Indication: MULTIPLE SCLEROSIS
     Route: 030
     Dates: start: 20070222
  2. DDAVP [Concomitant]
     Active Substance: DESMOPRESSIN ACETATE
  3. MYRBETRIQ [Concomitant]
     Active Substance: MIRABEGRON

REACTIONS (4)
  - Colon cancer [Unknown]
  - Infection [Unknown]
  - Appendicitis perforated [Unknown]
  - Polyp [Unknown]

NARRATIVE: CASE EVENT DATE: 20151116
